FAERS Safety Report 7802932-0 (Version None)
Quarter: 2011Q4

REPORT INFORMATION
  Report Type: 
  Country: None (occurrence: None)
  Receive Date: 20111007
  Receipt Date: 20110927
  Transmission Date: 20120403
  Serious: Yes (Hospitalization)
  Sender: FDA-Public Use
  Company Number: US-ELI_LILLY_AND_COMPANY-US201107008098

PATIENT
  Sex: Female

DRUGS (3)
  1. CENTRUM SILVER [Concomitant]
     Dosage: UNK
  2. HUMALOG [Suspect]
     Indication: TYPE 1 DIABETES MELLITUS
     Dosage: UNK
     Dates: start: 20100601
  3. PROCODIN [Concomitant]

REACTIONS (3)
  - PNEUMONIA [None]
  - INFECTION [None]
  - BLOOD GLUCOSE INCREASED [None]
